FAERS Safety Report 18398718 (Version 3)
Quarter: 2022Q2

REPORT INFORMATION
  Report Type: Spontaneous
  Country: US (occurrence: US)
  Receive Date: 20201019
  Receipt Date: 20220425
  Transmission Date: 20220721
  Serious: No
  Sender: FDA-Public Use
  Company Number: US-PFIZER INC-2018489187

PATIENT
  Age: 44 Year
  Sex: Female

DRUGS (9)
  1. LYRICA [Interacting]
     Active Substance: PREGABALIN
     Indication: Myelopathy
     Dosage: 50 MG, 3X/DAY
     Route: 048
  2. LYRICA [Interacting]
     Active Substance: PREGABALIN
     Indication: Intervertebral disc disorder
     Dosage: 75 MG, 3X/DAY
     Route: 048
  3. LYRICA [Interacting]
     Active Substance: PREGABALIN
     Indication: Occipital neuralgia
     Dosage: 100 MG, 3X/DAY
     Route: 048
  4. LYRICA [Interacting]
     Active Substance: PREGABALIN
     Indication: Bladder cancer
     Dosage: 200 MG, 3XDAY (TAKE ONE CAPSULE EVERY 8 HOURS)
     Route: 048
  5. LYRICA [Interacting]
     Active Substance: PREGABALIN
     Indication: Pain
     Dosage: 100 MG, AS NEEDED (TAKE 1 TABLET Q8H (EVERY 8 HOURS) PRN (AS NEEDED))
  6. LYRICA [Interacting]
     Active Substance: PREGABALIN
     Indication: Seizure
  7. LYRICA [Interacting]
     Active Substance: PREGABALIN
     Indication: Fibromyalgia
  8. LYRICA [Interacting]
     Active Substance: PREGABALIN
     Indication: Pain
  9. IBUPROFEN [Interacting]
     Active Substance: IBUPROFEN
     Dosage: UNK

REACTIONS (4)
  - Drug interaction [Unknown]
  - Pain [Unknown]
  - Fluid retention [Unknown]
  - Nerve compression [Unknown]
